FAERS Safety Report 7520263-3 (Version None)
Quarter: 2011Q2

REPORT INFORMATION
  Report Type: 
  Country: None (occurrence: None)
  Receive Date: 20110602
  Receipt Date: 20110526
  Transmission Date: 20111010
  Serious: Yes (Hospitalization)
  Sender: FDA-Public Use
  Company Number: US-US-EMD SERONO, INC.-7054424

PATIENT
  Sex: Female
  Weight: 117 kg

DRUGS (12)
  1. VITAMIN D [Concomitant]
     Dates: start: 20100607
  2. SUMATRIPTAN SUCCINATE [Concomitant]
     Route: 048
     Dates: start: 20101229
  3. REBIF [Suspect]
     Indication: MULTIPLE SCLEROSIS
     Route: 058
     Dates: start: 20101206, end: 20110401
  4. REBIF [Suspect]
     Route: 058
  5. GABAPENTIN [Concomitant]
     Dates: start: 20110222
  6. TOPIRAMATE [Concomitant]
     Dates: start: 20110222
  7. DOCUSATE SODIUM [Concomitant]
     Dates: start: 20100607
  8. SIMETHICONE [Concomitant]
     Dates: start: 20100803
  9. SENNA-MINT WAF [Concomitant]
     Dates: start: 20100607
  10. FERROUS SULFATE TAB [Concomitant]
     Dates: start: 20110319
  11. TIZANIDINE HCL [Concomitant]
     Dates: start: 20100929
  12. AMPYRA [Concomitant]
     Dates: start: 20110209

REACTIONS (7)
  - CHOLELITHIASIS [None]
  - INJECTION SITE PAIN [None]
  - PYREXIA [None]
  - CONSTIPATION [None]
  - HEADACHE [None]
  - PAIN [None]
  - PHARYNGEAL OEDEMA [None]
